FAERS Safety Report 4934723-2 (Version None)
Quarter: 2006Q1

REPORT INFORMATION
  Report Type: 
  Country: None (occurrence: None)
  Receive Date: 20060307
  Receipt Date: 20051011
  Transmission Date: 20060701
  Serious: Yes (Hospitalization)
  Sender: FDA-Public Use
  Company Number: US-MERCK-0510USA06924

PATIENT
  Age: 78 Year
  Sex: Female
  Weight: 62 kg

DRUGS (12)
  1. VIOXX [Suspect]
     Indication: OSTEOARTHRITIS
     Route: 048
     Dates: start: 20020107, end: 20021201
  2. VIOXX [Suspect]
     Indication: ARTHRALGIA
     Route: 048
     Dates: start: 20020107, end: 20021201
  3. PREMARIN [Concomitant]
     Route: 065
  4. TRIAMTERENE [Concomitant]
     Route: 065
     Dates: start: 20020107, end: 20050101
  5. MONOPRIL [Concomitant]
     Route: 065
     Dates: start: 20020107, end: 20030301
  6. CIPRO [Concomitant]
     Route: 065
  7. TOBRADEX [Concomitant]
     Route: 065
  8. ERYTHROMYCIN [Concomitant]
     Route: 065
  9. SULFAMETHOXAZOLE [Concomitant]
     Route: 065
  10. SULINDAC(WEST POINT PHARMA) [Concomitant]
     Route: 065
     Dates: start: 20021004
  11. FLOXIN [Concomitant]
     Route: 065
  12. DIAZIDE [Concomitant]
     Route: 065

REACTIONS (24)
  - ANAEMIA [None]
  - AORTIC ARTERIOSCLEROSIS [None]
  - ARTERIOSCLEROSIS [None]
  - BRONCHITIS ACUTE VIRAL [None]
  - CHEST PAIN [None]
  - COLD SWEAT [None]
  - CORONARY ARTERY DISEASE [None]
  - CYSTITIS NONINFECTIVE [None]
  - DRUG HYPERSENSITIVITY [None]
  - DYSPNOEA [None]
  - HAEMATOCRIT DECREASED [None]
  - HAEMOGLOBIN DECREASED [None]
  - HYPERCHOLESTEROLAEMIA [None]
  - HYPERSENSITIVITY [None]
  - HYPOTHYROIDISM [None]
  - MEDIASTINAL DISORDER [None]
  - MITRAL VALVE INCOMPETENCE [None]
  - MONARTHRITIS [None]
  - MYOCARDIAL INFARCTION [None]
  - PNEUMONIA [None]
  - POST PROCEDURAL COMPLICATION [None]
  - PULMONARY HYPERTENSION [None]
  - PYELONEPHRITIS ACUTE [None]
  - TRICUSPID VALVE INCOMPETENCE [None]
